FAERS Safety Report 7746945-6 (Version None)
Quarter: 2011Q3

REPORT INFORMATION
  Report Type: 
  Country: None (occurrence: None)
  Receive Date: 20110913
  Receipt Date: 20110905
  Transmission Date: 20111222
  Serious: Yes (Other)
  Sender: FDA-Public Use
  Company Number: PHHY2011DE79462

PATIENT
  Sex: Female

DRUGS (1)
  1. ONBREZ [Suspect]
     Indication: ALLERGIC GRANULOMATOUS ANGIITIS
     Dosage: 150 UG, DAILY
     Dates: start: 20110101

REACTIONS (2)
  - ALLERGIC GRANULOMATOUS ANGIITIS [None]
  - OBSTRUCTIVE AIRWAYS DISORDER [None]
